FAERS Safety Report 19430700 (Version 1)
Quarter: 2021Q2

REPORT INFORMATION
  Report Type: Spontaneous
  Country: AR (occurrence: AR)
  Receive Date: 20210617
  Receipt Date: 20210617
  Transmission Date: 20210717
  Serious: Yes (Other)
  Sender: FDA-Public Use
  Company Number: AR-TAKEDA-2021TUS036985

PATIENT

DRUGS (1)
  1. HUMAN NORMAL IMMUNOGLOBULIN [Suspect]
     Active Substance: HUMAN IMMUNOGLOBULIN G
     Indication: PRODUCT USED FOR UNKNOWN INDICATION
     Dosage: UNK
     Route: 042

REACTIONS (8)
  - Meningitis aseptic [Unknown]
  - Pyrexia [Unknown]
  - Hypertension [Unknown]
  - Headache [Unknown]
  - Tachycardia [Unknown]
  - Seizure [Unknown]
  - Chills [Unknown]
  - Rash [Unknown]
